FAERS Safety Report 21970775 (Version 2)
Quarter: 2023Q1

REPORT INFORMATION
  Report Type: Report from Study
  Country: US (occurrence: None)
  Receive Date: 20230209
  Receipt Date: 20230306
  Transmission Date: 20230418
  Serious: Yes (Hospitalization)
  Sender: FDA-Public Use
  Company Number: US-ROCHE-3279988

PATIENT

DRUGS (2)
  1. ATEZOLIZUMAB [Suspect]
     Active Substance: ATEZOLIZUMAB
     Indication: Non-small cell lung cancer
     Route: 041
  2. PIRFENIDONE [Suspect]
     Active Substance: PIRFENIDONE
     Indication: Non-small cell lung cancer
     Dosage: DAYS 1-14: 267 MILLIGRAMS (MG) ORALLY THREE TIMES PER DAY (PO TID) DAYS 15-29: 534 MG PO TID DAYS 30
     Route: 048

REACTIONS (1)
  - Urinary tract infection [Recovered/Resolved]

NARRATIVE: CASE EVENT DATE: 20221027
